FAERS Safety Report 4562272-2 (Version None)
Quarter: 2005Q1

REPORT INFORMATION
  Report Type: 
  Country: None (occurrence: None)
  Receive Date: 20050121
  Receipt Date: 20050111
  Transmission Date: 20050727
  Serious: Yes (Hospitalization, Other)
  Sender: FDA-Public Use
  Company Number: HQWYE023916DEC04

PATIENT

DRUGS (3)
  1. EFFEXOR XR [Suspect]
     Indication: ANXIETY
     Dosage: 75 MG 1 X PER 1 DAY, TRANSPLACENTAL
     Route: 064
  2. VITAMINS  (VITAMINS) [Concomitant]
  3. AMBIEN [Concomitant]

REACTIONS (4)
  - DRUG EXPOSURE DURING PREGNANCY [None]
  - DYSPNOEA [None]
  - LETHARGY [None]
  - NEONATAL DISORDER [None]
